FAERS Safety Report 6217111-0 (Version None)
Quarter: 2009Q2

REPORT INFORMATION
  Report Type: 
  Country: None (occurrence: None)
  Receive Date: 20090606
  Receipt Date: 20090526
  Transmission Date: 20091009
  Serious: Yes (Hospitalization)
  Sender: FDA-Public Use
  Company Number: FR-PFIZER INC-2009217831

PATIENT
  Age: 63 Year

DRUGS (1)
  1. SOLU-MEDROL [Suspect]
     Indication: PREMEDICATION
     Dosage: 1 DF, SINGLE
     Route: 042
     Dates: start: 20090515, end: 20090515

REACTIONS (1)
  - OROPHARYNGEAL DISCOMFORT [None]
